FAERS Safety Report 6378406-3 (Version None)
Quarter: 2009Q3

REPORT INFORMATION
  Report Type: 
  Country: None (occurrence: None)
  Receive Date: 20090925
  Receipt Date: 20090427
  Transmission Date: 20100115
  Serious: No
  Sender: FDA-Public Use
  Company Number: US-ASTRAZENECA-2007UW12847

PATIENT
  Age: 47 Year
  Sex: Male
  Weight: 113.9 kg

DRUGS (10)
  1. SEROQUEL [Suspect]
     Indication: SLEEP DISORDER
     Dosage: 100 MG TO 200 MG DAILY
     Route: 048
     Dates: start: 19980101, end: 20090406
  2. SEROQUEL [Suspect]
     Indication: DEPRESSION
     Dosage: 100 MG TO 200 MG DAILY
     Route: 048
     Dates: start: 19980101, end: 20090406
  3. SEROQUEL [Suspect]
     Indication: SCHIZOPHRENIA
     Dosage: 100 MG TO 200 MG DAILY
     Route: 048
     Dates: start: 19980101, end: 20090406
  4. RISPERDAL [Concomitant]
  5. ZYPREXA [Concomitant]
     Dates: start: 20000327, end: 20010319
  6. ABILIFY [Concomitant]
     Dates: start: 20060712
  7. ABILIFY [Concomitant]
     Dates: start: 20070412, end: 20070607
  8. GEODON [Concomitant]
     Dates: start: 20070101
  9. HALDOL [Concomitant]
     Dates: start: 19970101
  10. THORAZINE [Concomitant]
     Dates: start: 19970101

REACTIONS (2)
  - OBESITY [None]
  - TYPE 2 DIABETES MELLITUS [None]
